FAERS Safety Report 21160388 (Version 2)
Quarter: 2022Q3

REPORT INFORMATION
  Report Type: Spontaneous
  Country: US (occurrence: None)
  Receive Date: 20220802
  Receipt Date: 20220809
  Transmission Date: 20221026
  Serious: Yes (Hospitalization)
  Sender: FDA-Public Use
  Company Number: US-Ultragenyx Pharmaceutical Inc.-US-UGNX-22-00499

PATIENT
  Sex: Female

DRUGS (2)
  1. DOJOLVI [Suspect]
     Active Substance: TRIHEPTANOIN
     Indication: Carnitine palmitoyltransferase deficiency
     Route: 048
     Dates: start: 20220601
  2. DOJOLVI [Suspect]
     Active Substance: TRIHEPTANOIN
     Dosage: 3-4 TIMES DAILY
     Route: 048
     Dates: start: 20220508

REACTIONS (4)
  - Malaise [Unknown]
  - Rhabdomyolysis [Unknown]
  - Eating disorder [Unknown]
  - Pain in extremity [Unknown]
